FAERS Safety Report 7502073-6 (Version None)
Quarter: 2011Q2

REPORT INFORMATION
  Report Type: 
  Country: None (occurrence: None)
  Receive Date: 20110525
  Receipt Date: 20101005
  Transmission Date: 20111010
  Serious: No
  Sender: FDA-Public Use
  Company Number: A0886034A

PATIENT
  Sex: Male

DRUGS (2)
  1. ALCOHOL [Suspect]
  2. VENTOLIN [Suspect]
     Indication: ASTHMA

REACTIONS (1)
  - BREATH ODOUR [None]
